FAERS Safety Report 8841979 (Version 2)
Quarter: 2012Q4

REPORT INFORMATION
  Report Type: 
  Country: DE (occurrence: DE)
  Receive Date: 20121016
  Receipt Date: 20121031
  Transmission Date: 20130627
  Serious: Yes (Congenital Anomaly)
  Sender: FDA-Public Use
  Company Number: DE-UCBSA-068717

PATIENT
  Age: 0 None
  Sex: Male
  Weight: 2.98 kg

DRUGS (6)
  1. KEPPRA [Suspect]
     Indication: TEMPORAL LOBE EPILEPSY
     Route: 064
     Dates: start: 2011, end: 20120204
  2. KEPPRA [Suspect]
     Indication: TEMPORAL LOBE EPILEPSY
     Route: 063
     Dates: start: 2012, end: 2012
  3. TARDYFERON [Concomitant]
     Dosage: 1 TAB 1/WEEK
     Route: 064
     Dates: start: 2011, end: 20120204
  4. MAGNESIUM [Concomitant]
     Route: 064
     Dates: start: 2011, end: 20120204
  5. FOLIOFORTE [Concomitant]
     Dosage: 1 TAB DAILY
     Route: 064
     Dates: start: 2011, end: 20120204
  6. A-Z MAMMA [Concomitant]
     Dosage: 1 TAB DAILY
     Route: 064
     Dates: start: 2011, end: 20120204

REACTIONS (8)
  - Spine malformation [Unknown]
  - Plagiocephaly [Unknown]
  - Congenital scoliosis [Unknown]
  - Premature baby [Unknown]
  - Torticollis [Unknown]
  - Asthenia [Unknown]
  - Foetal exposure during pregnancy [Recovered/Resolved]
  - Exposure during breast feeding [Recovered/Resolved]
